FAERS Safety Report 16679217 (Version 3)
Quarter: 2020Q1

REPORT INFORMATION
  Report Type: Spontaneous
  Country: BR (occurrence: BR)
  Receive Date: 20190807
  Receipt Date: 20200207
  Transmission Date: 20200409
  Serious: Yes (Hospitalization, Other)
  Sender: FDA-Public Use
  Company Number: BR-GLAXOSMITHKLINE-BR2019GSK103523

PATIENT
  Sex: Female

DRUGS (1)
  1. NUCALA [Suspect]
     Active Substance: MEPOLIZUMAB
     Indication: ASTHMA
     Dosage: 100 MG, UNK
     Route: 042
     Dates: start: 20190401

REACTIONS (8)
  - Asthma [Recovered/Resolved]
  - Pulmonary embolism [Unknown]
  - Fall [Unknown]
  - Product dose omission [Unknown]
  - Surgery [Unknown]
  - Viral infection [Not Recovered/Not Resolved]
  - Respiratory failure [Unknown]
  - Spinal flattening [Recovered/Resolved]
